FAERS Safety Report 9458767 (Version 1)
Quarter: 2013Q3

REPORT INFORMATION
  Report Type: Report from Study
  Country: CO (occurrence: CO)
  Receive Date: 20130814
  Receipt Date: 20130814
  Transmission Date: 20140515
  Serious: Yes (Hospitalization, Other)
  Sender: FDA-Public Use
  Company Number: CO-ABBOTT-13P-036-1132817-00

PATIENT
  Age: 59 Year
  Sex: Female
  Weight: 60 kg

DRUGS (1)
  1. HUMIRA [Suspect]
     Indication: RHEUMATOID ARTHRITIS
     Dates: start: 20130313, end: 20130615

REACTIONS (3)
  - Respiratory distress [Recovering/Resolving]
  - Pyrexia [Recovering/Resolving]
  - Pulmonary tuberculosis [Recovering/Resolving]
